FAERS Safety Report 10856166 (Version 1)
Quarter: 2015Q1

REPORT INFORMATION
  Report Type: Spontaneous
  Country: NL (occurrence: None)
  Receive Date: 20150205
  Receipt Date: 20150205
  Transmission Date: 20150721
  Serious: Yes (Other)
  Sender: FDA-Public Use
  Company Number: LIT-002-15-NL

PATIENT

DRUGS (1)
  1. HUMAN NORMAL IMMUNOGLOBULIN (IV) (TRADENAME UNKNOWN) [Suspect]
     Active Substance: HUMAN IMMUNOGLOBULIN G
     Indication: CHRONIC INFLAMMATORY DEMYELINATING POLYRADICULONEUROPATHY

REACTIONS (1)
  - Stevens-Johnson syndrome [None]
